FAERS Safety Report 8283950-8 (Version None)
Quarter: 2012Q2

REPORT INFORMATION
  Report Type: 
  Country: None (occurrence: None)
  Receive Date: 20120413
  Receipt Date: 20120411
  Transmission Date: 20120825
  Serious: Yes (Other)
  Sender: FDA-Public Use
  Company Number: PHHY2012IT019356

PATIENT
  Age: 65 Year
  Sex: Male

DRUGS (2)
  1. ASPIRIN [Suspect]
  2. CLOPIDOGREL [Suspect]

REACTIONS (2)
  - ABDOMINAL PAIN [None]
  - ABDOMINAL WALL HAEMATOMA [None]
